FAERS Safety Report 6618288-5 (Version None)
Quarter: 2010Q1

REPORT INFORMATION
  Report Type: 
  Country: None (occurrence: None)
  Receive Date: 20100302
  Receipt Date: 20091117
  Transmission Date: 20100710
  Serious: Yes (Other)
  Sender: FDA-Public Use
  Company Number: US-JNJFOC-20100210743

PATIENT
  Age: 50 Year
  Sex: Male

DRUGS (2)
  1. DECITABINE (DECITABINE) LYOPHILIZED POWDER [Suspect]
     Indication: MYELODYSPLASTIC SYNDROME
     Dosage: INTRAVENOUS
     Route: 042
  2. VORINOSTAT (VORINOSTAT) UNSPECIFIED [Suspect]
     Indication: MYELODYSPLASTIC SYNDROME

REACTIONS (3)
  - ACUTE FEBRILE NEUTROPHILIC DERMATOSIS [None]
  - MYELODYSPLASTIC SYNDROME [None]
  - RECURRENT CANCER [None]
